FAERS Safety Report 18531202 (Version 2)
Quarter: 2021Q1

REPORT INFORMATION
  Report Type: Report from Study
  Country: US (occurrence: US)
  Receive Date: 20201122
  Receipt Date: 20210108
  Transmission Date: 20210419
  Serious: No
  Sender: FDA-Public Use
  Company Number: NVSC2020US304456

PATIENT
  Age: 49 Year
  Sex: Male

DRUGS (1)
  1. COSENTYX [Suspect]
     Active Substance: SECUKINUMAB
     Indication: PSORIASIS
     Dosage: 300 MG, QW
     Route: 058
     Dates: start: 20201106

REACTIONS (3)
  - Skin warm [Unknown]
  - Pain of skin [Unknown]
  - Erythema [Unknown]

NARRATIVE: CASE EVENT DATE: 20201112
